FAERS Safety Report 6382841-7 (Version None)
Quarter: 2009Q3

REPORT INFORMATION
  Report Type: 
  Country: None (occurrence: None)
  Receive Date: 20090928
  Receipt Date: 20090928
  Transmission Date: 20100115
  Serious: Yes (Other)
  Sender: FDA-Public Use
  Company Number: None

PATIENT
  Age: 70 Year
  Sex: Female

DRUGS (9)
  1. APO-GO PFS (APO-GO) (APOMORPHINE HYDROCHLORIDE) (APOMORPHINE HYDROCHLO [Suspect]
     Indication: PARKINSON'S DISEASE
     Dosage: 120 MG (5MG, 1 IN 1 HR), SUBCUTANEOUS
     Route: 058
     Dates: start: 20071001, end: 20080319
  2. NEUPRO [Suspect]
     Dosage: TRANSDERMAL
     Route: 062
     Dates: start: 20070816, end: 20080316
  3. MOTILIUM [Concomitant]
  4. GLUCOPHAGE [Concomitant]
  5. DIAMICRON (GLICLAZIDE) [Concomitant]
  6. LIPOSTAT (PRAVASTATIN) [Concomitant]
  7. ENTACAPONE [Concomitant]
  8. SINEMET CR [Concomitant]
  9. MADOPAR (MADOPAR [Concomitant]

REACTIONS (6)
  - CELLULITIS [None]
  - ERYTHEMA [None]
  - FIBROSIS [None]
  - INFLAMMATION [None]
  - INFUSION SITE MASS [None]
  - PAIN [None]
